FAERS Safety Report 12122301 (Version 2)
Quarter: 2016Q1

REPORT INFORMATION
  Report Type: Spontaneous
  Country: VE (occurrence: VE)
  Receive Date: 20160226
  Receipt Date: 20160317
  Transmission Date: 20160526
  Serious: Yes (Other)
  Sender: FDA-Public Use
  Company Number: PHHY2016VE024495

PATIENT
  Age: 86 Year
  Sex: Male

DRUGS (18)
  1. CILOSTAL [Concomitant]
     Active Substance: CILOSTAZOL
     Indication: HYPOPERFUSION
     Dosage: UNK, QD
     Route: 065
  2. EXELON PATCH [Suspect]
     Active Substance: RIVASTIGMINE
     Indication: MEMORY IMPAIRMENT
     Dosage: 4.6 MG, QD (PATCH 5CM2)
     Route: 062
     Dates: start: 2008
  3. CATAFLAM [Suspect]
     Active Substance: DICLOFENAC POTASSIUM
     Indication: MUSCLE RIGIDITY
  4. HITOP [Concomitant]
     Indication: PROPHYLAXIS
     Dosage: 40 MG, QD
     Route: 065
  5. STALEVO [Suspect]
     Active Substance: CARBIDOPA\ENTACAPONE\LEVODOPA
     Indication: PARKINSON^S DISEASE
     Dosage: 300 MG, QD (50MG)
     Route: 048
     Dates: start: 2008
  6. STALEVO [Suspect]
     Active Substance: CARBIDOPA\ENTACAPONE\LEVODOPA
     Dosage: 3 DF, QD (50MG)
     Route: 048
  7. VESSEL DUE [Concomitant]
     Dosage: 500 MG, QD
     Route: 065
  8. CATAFLAM [Suspect]
     Active Substance: DICLOFENAC POTASSIUM
     Indication: PAIN
     Dosage: 150 MG, PRN
     Route: 048
  9. ALDACTONE [Concomitant]
     Active Substance: SPIRONOLACTONE
     Indication: DIURETIC THERAPY
     Dosage: UNK UNK, QD
     Route: 065
     Dates: start: 2014
  10. MEVALOTIN [Concomitant]
     Active Substance: PRAVASTATIN SODIUM
     Indication: HEPATIC STEATOSIS
     Dosage: UNK UNK, QD
     Route: 065
  11. DIOVAN [Suspect]
     Active Substance: VALSARTAN
     Indication: HYPERTENSION
     Dosage: 80 MG, QD
     Route: 048
     Dates: start: 2010
  12. TRENTAL [Concomitant]
     Active Substance: PENTOXIFYLLINE
     Indication: CEREBRAL HYPOPERFUSION
     Dosage: 400 MG, QD
     Route: 065
  13. MIRAPEX [Concomitant]
     Active Substance: PRAMIPEXOLE DIHYDROCHLORIDE
     Indication: PARKINSON^S DISEASE
     Dosage: 3 MG, QD
     Route: 065
     Dates: start: 2008
  14. VOLTAREN [Concomitant]
     Active Substance: DICLOFENAC SODIUM
     Indication: PAIN
     Dosage: 2 APLICATIONS, QD
     Route: 065
  15. VESSEL DUE [Concomitant]
     Indication: CARDIOVASCULAR DISORDER
     Dosage: 250 MG, QD
     Route: 065
  16. CARDIPIRINA [Concomitant]
     Indication: CARDIAC DISORDER
     Dosage: 80 MG, QD
     Route: 065
  17. STALEVO [Suspect]
     Active Substance: CARBIDOPA\ENTACAPONE\LEVODOPA
     Dosage: 1 DF, QD (50MG)
     Route: 048
  18. STALEVO [Suspect]
     Active Substance: CARBIDOPA\ENTACAPONE\LEVODOPA
     Dosage: UNK (150MG)
     Route: 048

REACTIONS (10)
  - Muscle rigidity [Not Recovered/Not Resolved]
  - Peripheral swelling [Not Recovered/Not Resolved]
  - Dysphagia [Not Recovered/Not Resolved]
  - Tremor [Not Recovered/Not Resolved]
  - Condition aggravated [Not Recovered/Not Resolved]
  - Parkinson^s disease [Unknown]
  - Musculoskeletal stiffness [Not Recovered/Not Resolved]
  - Product use issue [Unknown]
  - Oral discomfort [Not Recovered/Not Resolved]
  - Malaise [Not Recovered/Not Resolved]

NARRATIVE: CASE EVENT DATE: 20160302
